FAERS Safety Report 5833491-X (Version None)
Quarter: 2008Q3

REPORT INFORMATION
  Report Type: 
  Country: None (occurrence: None)
  Receive Date: 20080805
  Receipt Date: 20080726
  Transmission Date: 20090109
  Serious: Yes (Other)
  Sender: FDA-Public Use
  Company Number: JP-ABBOTT-08P-087-0467173-00

PATIENT
  Sex: Female

DRUGS (1)
  1. FENOFIBRATE [Suspect]
     Indication: HYPERLIPIDAEMIA
     Route: 048
     Dates: start: 20080703

REACTIONS (3)
  - BILIARY DYSKINESIA [None]
  - HEPATIC FUNCTION ABNORMAL [None]
  - PANCREATITIS [None]
